FAERS Safety Report 10289531 (Version 2)
Quarter: 2014Q3

REPORT INFORMATION
  Report Type: Report from Study
  Country: MX (occurrence: MX)
  Receive Date: 20140710
  Receipt Date: 20140710
  Transmission Date: 20150326
  Serious: Yes (Death)
  Sender: FDA-Public Use
  Company Number: PHHY2012MX091107

PATIENT
  Age: 78 Year
  Sex: Male

DRUGS (3)
  1. ONBREZ [Suspect]
     Active Substance: INDACATEROL
     Indication: LUNG DISORDER
  2. ONBREZ [Suspect]
     Active Substance: INDACATEROL
     Indication: OFF LABEL USE
     Dosage: 300 UG, UNK
     Route: 048
     Dates: end: 201405
  3. ONBREZ [Suspect]
     Active Substance: INDACATEROL
     Indication: ASTHMA
     Dosage: 150 UG, DAILY
     Route: 055
     Dates: start: 20120509

REACTIONS (4)
  - Influenza [Recovered/Resolved]
  - Chest discomfort [Recovered/Resolved]
  - Lung disorder [Fatal]
  - Incorrect route of drug administration [Unknown]

NARRATIVE: CASE EVENT DATE: 20121004
